FAERS Safety Report 7271999-3 (Version None)
Quarter: 2011Q1

REPORT INFORMATION
  Report Type: 
  Country: None (occurrence: None)
  Receive Date: 20110131
  Receipt Date: 20110131
  Transmission Date: 20110831
  Serious: Yes (Hospitalization)
  Sender: FDA-Public Use
  Company Number: None

PATIENT
  Age: 39 Year
  Sex: Female
  Weight: 97.0698 kg

DRUGS (2)
  1. LEXAPRO [Suspect]
     Indication: DEPRESSION
     Dosage: LEXAPRO 10MG PO QD
     Route: 048
  2. LEXAPRO [Suspect]
     Indication: ANXIETY
     Dosage: LEXAPRO 10MG PO QD
     Route: 048

REACTIONS (1)
  - GRAND MAL CONVULSION [None]
